FAERS Safety Report 12798466 (Version 1)
Quarter: 2016Q3

REPORT INFORMATION
  Report Type: Spontaneous
  Country: US (occurrence: None)
  Receive Date: 20160929
  Receipt Date: 20160929
  Transmission Date: 20161109
  Serious: No
  Sender: FDA-Public Use
  Company Number: UNT-2016-014131

PATIENT
  Age: 78 Year
  Sex: Female
  Weight: 61.2 kg

DRUGS (1)
  1. TYVASO [Suspect]
     Active Substance: TREPROSTINIL
     Indication: PULMONARY HYPERTENSION
     Dosage: 18-54 UG, QID, INHALATION
     Route: 055
     Dates: start: 20150917

REACTIONS (1)
  - Device failure [None]
